FAERS Safety Report 24838368 (Version 1)
Quarter: 2025Q1

REPORT INFORMATION
  Report Type: Spontaneous
  Country: US (occurrence: None)
  Receive Date: 20250113
  Receipt Date: 20250113
  Transmission Date: 20250409
  Serious: No
  Sender: FDA-CTU
  Company Number: None

PATIENT

DRUGS (1)
  1. AIMOVIG [Suspect]
     Active Substance: ERENUMAB-AOOE

REACTIONS (5)
  - Product dose omission issue [None]
  - Facial paralysis [None]
  - Hypoaesthesia [None]
  - Aphasia [None]
  - Cerebrovascular accident [None]
